FAERS Safety Report 21220462 (Version 2)
Quarter: 2022Q3

REPORT INFORMATION
  Report Type: Other
  Country: CN (occurrence: CN)
  Receive Date: 20220817
  Receipt Date: 20220901
  Transmission Date: 20221027
  Serious: Yes (Disabling)
  Sender: FDA-Public Use
  Company Number: CN-002147023-NVSC2022CN182164

PATIENT
  Age: 81 Year
  Sex: Male
  Weight: 70 kg

DRUGS (5)
  1. RANIBIZUMAB [Suspect]
     Active Substance: RANIBIZUMAB
     Indication: Visual impairment
     Dosage: 5 DOSAGE FORM (5 INJECTIONS IN 4 MONTHS) (RIGHT EYE)
     Route: 050
     Dates: start: 202105, end: 202109
  2. RANIBIZUMAB [Suspect]
     Active Substance: RANIBIZUMAB
     Indication: Diabetic retinal oedema
     Dosage: 5 DOSAGE FORM (5 INJECTIONS IN 4 MONTHS) (LEFT EYE)
     Route: 050
     Dates: start: 202206
  3. RANIBIZUMAB [Suspect]
     Active Substance: RANIBIZUMAB
     Route: 050
     Dates: start: 202207
  4. RANIBIZUMAB [Suspect]
     Active Substance: RANIBIZUMAB
     Route: 050
     Dates: start: 20220823
  5. INSULIN NOS [Concomitant]
     Active Substance: INSULIN NOS
     Indication: Diabetes mellitus
     Dosage: UNK

REACTIONS (4)
  - Glaucoma [Recovering/Resolving]
  - Visual acuity reduced [Recovering/Resolving]
  - Blindness [Recovering/Resolving]
  - Haemangioma of retina [Recovered/Resolved]

NARRATIVE: CASE EVENT DATE: 20210501
